FAERS Safety Report 5492794-1 (Version None)
Quarter: 2007Q4

REPORT INFORMATION
  Report Type: 
  Country: None (occurrence: None)
  Receive Date: 20071019
  Receipt Date: 20071005
  Transmission Date: 20080405
  Serious: Yes (Hospitalization, Disabling)
  Sender: FDA-Public Use
  Company Number: 2007001703

PATIENT
  Age: 80 Year
  Sex: Female

DRUGS (1)
  1. TARCEVA [Suspect]
     Indication: NON-SMALL CELL LUNG CANCER
     Dosage: (150 MG, QD)
     Dates: start: 20070315, end: 20070721

REACTIONS (5)
  - ARTHRITIS [None]
  - ARTHRITIS BACTERIAL [None]
  - CONDITION AGGRAVATED [None]
  - DIARRHOEA [None]
  - RASH [None]
